FAERS Safety Report 8898669 (Version 3)
Quarter: 2014Q2

REPORT INFORMATION
  Report Type: Spontaneous
  Country: US (occurrence: US)
  Receive Date: 20121109
  Receipt Date: 20140502
  Transmission Date: 20141212
  Serious: Yes (Life-Threatening, Hospitalization, Other)
  Sender: FDA-Public Use
  Company Number: US-BAYER-2012-115851

PATIENT
  Age: 31 Year
  Sex: Female
  Weight: 63.49 kg

DRUGS (22)
  1. YASMIN [Suspect]
     Indication: CONTRACEPTION
     Dosage: UNK
     Dates: start: 1999, end: 2009
  2. OCELLA [Suspect]
     Dosage: UNK
     Dates: start: 1999, end: 2009
  3. SINGULAIR [Concomitant]
     Indication: MULTIPLE ALLERGIES
     Dosage: UNK
     Dates: start: 200705
  4. URSODIOL [Concomitant]
     Indication: LIVER DISORDER
     Dosage: UNK
     Dates: start: 199910
  5. OMEPRAZOL [Concomitant]
     Indication: LIVER DISORDER
     Dosage: UNK
     Dates: start: 199910
  6. ATENOLOL [Concomitant]
     Indication: MIGRAINE
     Dosage: UNK
     Dates: start: 199910
  7. RANITIDINE [Concomitant]
     Dosage: 300 MG, HS
  8. ZYRTEC [Concomitant]
     Dosage: 10 MG, UNK
  9. ALPRAZOLAM [Concomitant]
     Dosage: 0.25 MG, UNK
     Dates: start: 20090910
  10. TRAZODONE [Concomitant]
     Dosage: 50 MG, UNK
     Dates: start: 20090818, end: 20090923
  11. SERTRALINE [Concomitant]
     Dosage: 50 MG, UNK
     Dates: start: 20090923
  12. CHERATUSSIN [CODEINE,GUAIFENESIN,PSEUDOEPHEDRINE] [Concomitant]
     Dosage: UNK
     Dates: start: 20090928
  13. XOPENEX [Concomitant]
     Dosage: 45 MCG
     Route: 045
     Dates: start: 20091011
  14. FLOVENT [Concomitant]
     Dosage: 220 MCG
     Route: 045
     Dates: start: 20091011, end: 20091115
  15. ZOMIG [Concomitant]
     Dosage: 2.5 MG, UNK
     Dates: start: 20090825, end: 20091227
  16. EPIPEN [Concomitant]
     Dosage: 0.3 MG, UNK
     Dates: start: 20091011, end: 20100331
  17. CLONAZEPAM [Concomitant]
     Dosage: 0.5 MG, UNK
     Dates: start: 20090923, end: 20100505
  18. TOPIRAMATE [Concomitant]
     Dosage: 50 MG, UNK
     Dates: start: 20090708, end: 20100522
  19. DONNATAL [Concomitant]
  20. ZOFRAN [Concomitant]
  21. BROMFED [Concomitant]
  22. TOPAMAX [Concomitant]

REACTIONS (15)
  - Cholelithiasis [None]
  - Cholecystitis chronic [None]
  - Emotional distress [None]
  - Injury [None]
  - Pain [None]
  - General physical health deterioration [None]
  - Anxiety [None]
  - Anhedonia [None]
  - Pain [None]
  - Liver disorder [None]
  - Gastric disorder [None]
  - Eating disorder [None]
  - Depression [None]
  - Panic attack [None]
  - Hepatic failure [None]
